FAERS Safety Report 16814252 (Version 1)
Quarter: 2019Q3

REPORT INFORMATION
  Report Type: Spontaneous
  Country: US (occurrence: US)
  Receive Date: 20190917
  Receipt Date: 20190917
  Transmission Date: 20191005
  Serious: No
  Sender: FDA-Public Use
  Company Number: US-ALLERGAN-1919664US

PATIENT
  Sex: Female
  Weight: 56.7 kg

DRUGS (11)
  1. METOPROLOL ER [Concomitant]
     Active Substance: METOPROLOL SUCCINATE
     Indication: TACHYCARDIA
     Dosage: 50 MG, QD, BEGAN TAKING 8 OR 9 YEARS AGO
     Route: 048
  2. CARAFATE [Suspect]
     Active Substance: SUCRALFATE
     Indication: GASTROINTESTINAL DISORDER PROPHYLAXIS
     Dosage: 2 DF, QID (2 TEASPOONS)
     Route: 048
     Dates: start: 201902
  3. NEUROTIN [Concomitant]
     Active Substance: GABAPENTIN
     Indication: SYNOVIAL CYST
  4. TROKENDI [Concomitant]
     Active Substance: TOPIRAMATE
     Indication: PROPHYLAXIS
     Dosage: 100 MG, QD, TAKING FOR 10 YEARS. TROKENDI ER OR XR, THEN STATED EXTENDED RELEASE
     Route: 048
  5. NEUROTIN [Concomitant]
     Active Substance: GABAPENTIN
     Indication: NEUROMA
     Dosage: ACTUAL: WON^T TAKE MORE THAN 100 MG DAILY AS NEEDED
     Route: 048
  6. TRAMADOL. [Concomitant]
     Active Substance: TRAMADOL
     Indication: PAIN
     Dosage: 50 MG, TID, AS NEEDED, BEGAN TAKING A YEAR AND A HALF AGO
  7. MAALOX ANTACID [Suspect]
     Active Substance: ALUMINUM HYDROXIDE\DIMETHICONE\MAGNESIUM HYDROXIDE
     Indication: DYSPEPSIA
     Dosage: COUPLE TABLESPOONS, COUPLE TIMES A DAY, AS NEEDED
     Route: 048
     Dates: start: 201902
  8. ESOMEPRAZOLE MAGNESIUM. [Concomitant]
     Active Substance: ESOMEPRAZOLE MAGNESIUM
     Indication: DYSPEPSIA
     Dosage: 40 MG, BID
     Route: 048
  9. NEXIUM 24HR CLEARMINIS [Concomitant]
     Active Substance: ESOMEPRAZOLE MAGNESIUM
     Indication: ABDOMINAL PAIN UPPER
  10. NEXIUM 24HR CLEARMINIS [Concomitant]
     Active Substance: ESOMEPRAZOLE MAGNESIUM
     Indication: GASTRIC ULCER
  11. SYNTHROID [Concomitant]
     Active Substance: LEVOTHYROXINE SODIUM
     Indication: THYROID DISORDER
     Dosage: 75 ?G, QD, TAKING FOR 16 YEARS
     Route: 048

REACTIONS (2)
  - Gastrooesophageal reflux disease [Unknown]
  - Dyspepsia [Unknown]
